FAERS Safety Report 6044811-8 (Version None)
Quarter: 2009Q1

REPORT INFORMATION
  Report Type: 
  Country: None (occurrence: None)
  Receive Date: 20090120
  Receipt Date: 20090109
  Transmission Date: 20090719
  Serious: Yes (Death, Hospitalization)
  Sender: FDA-Public Use
  Company Number: IN-BAXTER-2009BH000906

PATIENT
  Age: 75 Year
  Sex: Female

DRUGS (5)
  1. DIANEAL [Suspect]
     Indication: RENAL FAILURE CHRONIC
     Route: 033
     Dates: start: 20081201, end: 20090109
  2. DIANEAL [Suspect]
     Route: 033
     Dates: start: 20050801, end: 20081201
  3. FEFOL [Concomitant]
     Indication: DRUG USE FOR UNKNOWN INDICATION
     Route: 065
     Dates: end: 20090109
  4. SHELCAL [Concomitant]
     Indication: DRUG USE FOR UNKNOWN INDICATION
     Route: 065
     Dates: end: 20090109
  5. ROCALTROL [Concomitant]
     Indication: DRUG USE FOR UNKNOWN INDICATION
     Route: 065
     Dates: end: 20090109

REACTIONS (2)
  - CARDIAC ARREST [None]
  - FLUID OVERLOAD [None]
